FAERS Safety Report 11750781 (Version 1)
Quarter: 2015Q4

REPORT INFORMATION
  Report Type: Spontaneous
  Country: US (occurrence: US)
  Receive Date: 20151118
  Receipt Date: 20151118
  Transmission Date: 20160304
  Serious: No
  Sender: FDA-Public Use
  Company Number: US-TRIS PHARMA, INC.-1044377

PATIENT
  Age: 81 Year
  Sex: Male

DRUGS (1)
  1. CHLORPHENAMINE/HYDROCODONE [Suspect]
     Active Substance: CHLORPHENIRAMINE\HYDROCODONE
     Indication: COUGH
     Route: 048
     Dates: start: 20141219

REACTIONS (2)
  - Drug ineffective [Unknown]
  - Product substitution issue [None]

NARRATIVE: CASE EVENT DATE: 20141219
